FAERS Safety Report 9910232 (Version 1)
Quarter: 2014Q1

REPORT INFORMATION
  Report Type: Spontaneous
  Country: US (occurrence: US)
  Receive Date: 20140219
  Receipt Date: 20140219
  Transmission Date: 20141002
  Serious: No
  Sender: FDA-Public Use
  Company Number: US-TEVA-444608USA

PATIENT
  Age: 41 Year
  Sex: Male

DRUGS (5)
  1. OXYMORPHONE HYDROCHLORIDE [Suspect]
     Indication: PAIN
     Dosage: 40 MILLIGRAM DAILY;
  2. FLUTICASONE [Concomitant]
  3. AZELASTINE [Concomitant]
  4. ALLEGRA-D [Concomitant]
  5. ZOLPIDEM [Concomitant]

REACTIONS (2)
  - Feeling abnormal [Unknown]
  - Drug effect increased [Unknown]
